FAERS Safety Report 7897384-9 (Version None)
Quarter: 2011Q4

REPORT INFORMATION
  Report Type: 
  Country: None (occurrence: None)
  Receive Date: 20111107
  Receipt Date: 20111028
  Transmission Date: 20120403
  Serious: Yes (Hospitalization, Other)
  Sender: FDA-Public Use
  Company Number: AU-B.I. PHARMACEUTICALS,INC./RIDGEFIELD-2011-AU-02071AU

PATIENT
  Sex: Female

DRUGS (7)
  1. TEMISARTAN [Concomitant]
     Dosage: 80 MG
  2. METFORMIN HCL [Concomitant]
     Dosage: 850 MG
  3. PRADAXA [Suspect]
     Indication: CEREBROVASCULAR ACCIDENT PROPHYLAXIS
     Dosage: 220 MG
     Dates: start: 20110801, end: 20110910
  4. BISOPROLOL [Concomitant]
     Dosage: 10 MG
  5. ATORVASTATIN [Concomitant]
     Dosage: 80 MG
  6. GLICLAZIDE [Concomitant]
  7. ALLOPURINOL [Concomitant]
     Dosage: 100 MG

REACTIONS (4)
  - HAEMATOCHEZIA [None]
  - RENAL IMPAIRMENT [None]
  - GASTROINTESTINAL HAEMORRHAGE [None]
  - MESENTERIC ARTERY EMBOLISM [None]
